FAERS Safety Report 23664438 (Version 1)
Quarter: 2024Q1

REPORT INFORMATION
  Report Type: Spontaneous
  Country: US (occurrence: US)
  Receive Date: 20240322
  Receipt Date: 20240322
  Transmission Date: 20240410
  Serious: Yes (Other)
  Sender: FDA-Public Use
  Company Number: US-JNJFOC-20240339496

PATIENT
  Sex: Male

DRUGS (1)
  1. TALVEY [Suspect]
     Active Substance: TALQUETAMAB-TGVS
     Indication: Product used for unknown indication
     Route: 065

REACTIONS (33)
  - Choking [Unknown]
  - Fall [Recovered/Resolved with Sequelae]
  - Depressed mood [Recovered/Resolved]
  - Hypoaesthesia [Recovering/Resolving]
  - Pain [Unknown]
  - Dry skin [Recovered/Resolved]
  - Skin exfoliation [Recovered/Resolved]
  - Anosmia [Recovering/Resolving]
  - Ageusia [Recovering/Resolving]
  - Weight decreased [Unknown]
  - Salivary hypersecretion [Unknown]
  - Dysphagia [Recovering/Resolving]
  - Pruritus [Unknown]
  - Pain of skin [Unknown]
  - Nail discolouration [Recovering/Resolving]
  - Nail disorder [Recovering/Resolving]
  - Insomnia [Unknown]
  - Language disorder [Unknown]
  - Decreased appetite [Recovering/Resolving]
  - Dry mouth [Not Recovered/Not Resolved]
  - Eating disorder [Recovering/Resolving]
  - Fatigue [Not Recovered/Not Resolved]
  - Back pain [Unknown]
  - Skin exfoliation [Recovered/Resolved]
  - Pruritus [Recovered/Resolved]
  - Onychoclasis [Recovering/Resolving]
  - Nail disorder [Recovering/Resolving]
  - Nail disorder [Recovering/Resolving]
  - Nail growth abnormal [Unknown]
  - Feeling abnormal [Unknown]
  - Nausea [Unknown]
  - Weight decreased [Recovering/Resolving]
  - Product dose omission issue [Unknown]
